FAERS Safety Report 10034748 (Version 1)
Quarter: 2014Q1

REPORT INFORMATION
  Report Type: Report from Study
  Country: MX (occurrence: MX)
  Receive Date: 20140325
  Receipt Date: 20140325
  Transmission Date: 20141002
  Serious: Yes (Other)
  Sender: FDA-Public Use
  Company Number: MX-SA-2014SA035410

PATIENT
  Age: 15 Year
  Sex: Male

DRUGS (1)
  1. CEREZYME [Suspect]
     Indication: GAUCHER^S DISEASE
     Dosage: DOSE : 7 VIALS
     Route: 042

REACTIONS (2)
  - Exomphalos [Unknown]
  - Thrombocytopenia [Not Recovered/Not Resolved]
